FAERS Safety Report 4407794-X (Version None)
Quarter: 2004Q3

REPORT INFORMATION
  Report Type: 
  Country: None (occurrence: None)
  Receive Date: 20040721
  Receipt Date: 20040707
  Transmission Date: 20050211
  Serious: Yes (Hospitalization)
  Sender: FDA-Public Use
  Company Number: US-JNJFOC-20040701483

PATIENT
  Sex: Female

DRUGS (1)
  1. DOXIL (DOXORUBICIN HYDROCHLORIDE) LIPOSOME INJECTION [Suspect]
     Indication: BREAST CANCER
     Dates: start: 20020101, end: 20020101

REACTIONS (10)
  - ARTHRALGIA [None]
  - BLISTER [None]
  - BREAST DISCHARGE [None]
  - BREAST NECROSIS [None]
  - BREAST OEDEMA [None]
  - BREAST TENDERNESS [None]
  - CHEST DISCOMFORT [None]
  - ERYTHEMA [None]
  - INFUSION RELATED REACTION [None]
  - MEDICATION ERROR [None]
